FAERS Safety Report 16177515 (Version 3)
Quarter: 2019Q2

REPORT INFORMATION
  Report Type: Report from Study
  Country: DE (occurrence: DE)
  Receive Date: 20190410
  Receipt Date: 20190611
  Transmission Date: 20190711
  Serious: Yes (Hospitalization)
  Sender: FDA-Public Use
  Company Number: DE-BIOGEN-2019BI00721913

PATIENT
  Age: 44 Year
  Sex: Male
  Weight: 60 kg

DRUGS (7)
  1. PREGABALIN. [Concomitant]
     Active Substance: PREGABALIN
     Indication: FACIAL PAIN
     Route: 065
     Dates: start: 20180908
  2. CARBAMAZEPINE. [Concomitant]
     Active Substance: CARBAMAZEPINE
     Indication: FACIAL PAIN
     Route: 048
     Dates: start: 20180306
  3. PANTOPRAZOLE [Concomitant]
     Active Substance: PANTOPRAZOLE
     Indication: PROPHYLAXIS
     Route: 048
     Dates: start: 20180605
  4. TYSABRI [Suspect]
     Active Substance: NATALIZUMAB
     Indication: MULTIPLE SCLEROSIS
     Route: 042
     Dates: start: 20141202
  5. IBUPROFEN. [Concomitant]
     Active Substance: IBUPROFEN
     Indication: PROPHYLAXIS
     Route: 065
     Dates: start: 20180621
  6. BACLOFEN. [Concomitant]
     Active Substance: BACLOFEN
     Indication: FACIAL PAIN
     Route: 048
     Dates: start: 20180711
  7. NOVALGIN [Concomitant]
     Indication: FACIAL PAIN
     Route: 065
     Dates: start: 20180621

REACTIONS (1)
  - Trigeminal neuralgia [Recovered/Resolved with Sequelae]

NARRATIVE: CASE EVENT DATE: 20190221
